FAERS Safety Report 6650070-5 (Version None)
Quarter: 2010Q1

REPORT INFORMATION
  Report Type: 
  Country: None (occurrence: None)
  Receive Date: 20100325
  Receipt Date: 20100319
  Transmission Date: 20100710
  Serious: Yes (Life-Threatening)
  Sender: FDA-Public Use
  Company Number: AT-WYE-H14237210

PATIENT
  Age: 78 Year
  Sex: Female

DRUGS (4)
  1. PANTOPRAZOLE [Suspect]
     Indication: GASTROOESOPHAGEAL REFLUX DISEASE
     Route: 042
     Dates: start: 20100217, end: 20100222
  2. PANTOPRAZOLE [Suspect]
     Indication: OESOPHAGITIS
  3. FLUCONAZOLE [Concomitant]
     Dosage: UNKNOWN
     Dates: start: 20100216, end: 20100222
  4. OPTINEM [Concomitant]
     Indication: PNEUMONIA
     Dosage: 1500 MG AMPULES
     Route: 042
     Dates: start: 20100220, end: 20100222

REACTIONS (4)
  - CONDITION AGGRAVATED [None]
  - GASTROOESOPHAGEAL REFLUX DISEASE [None]
  - MELAENA [None]
  - OESOPHAGITIS [None]
